FAERS Safety Report 15689795 (Version 1)
Quarter: 2018Q4

REPORT INFORMATION
  Report Type: Spontaneous
  Country: CN (occurrence: CN)
  Receive Date: 20181205
  Receipt Date: 20181205
  Transmission Date: 20190205
  Serious: Yes (Other)
  Sender: FDA-Public Use
  Company Number: CN-PFIZER INC-2018492965

PATIENT
  Age: 3 Year
  Sex: Male
  Weight: 12 kg

DRUGS (2)
  1. ZITHROMAX [Suspect]
     Active Substance: AZITHROMYCIN DIHYDRATE
     Indication: PNEUMONIA
  2. ZITHROMAX [Suspect]
     Active Substance: AZITHROMYCIN DIHYDRATE
     Indication: INFECTION
     Dosage: 125 MG, 1X/DAY
     Route: 048
     Dates: start: 20180920, end: 20180921

REACTIONS (8)
  - Lip erythema [Recovered/Resolved]
  - Lip disorder [Recovered/Resolved]
  - Ocular hyperaemia [Recovered/Resolved]
  - Lip swelling [Recovered/Resolved]
  - Macule [Recovered/Resolved]
  - Rubella [Recovered/Resolved]
  - Eye disorder [Recovered/Resolved]
  - Swelling [Recovered/Resolved]

NARRATIVE: CASE EVENT DATE: 20180921
